FAERS Safety Report 22033007 (Version 1)
Quarter: 2023Q1

REPORT INFORMATION
  Report Type: Spontaneous
  Country: GB (occurrence: GB)
  Receive Date: 20230224
  Receipt Date: 20230224
  Transmission Date: 20230418
  Serious: Yes (Other)
  Sender: FDA-Public Use
  Company Number: GB-MHRA-MED-202302071654228480-YSHCP

PATIENT
  Age: 36 Year
  Sex: Female

DRUGS (3)
  1. ATRACURIUM [Suspect]
     Active Substance: ATRACURIUM
     Indication: General anaesthesia
     Route: 065
     Dates: start: 20230207, end: 20230207
  2. FENTANYL [Concomitant]
     Active Substance: FENTANYL
     Indication: General anaesthesia
     Dosage: UNKNOWN
     Route: 065
     Dates: start: 20230207, end: 20230207
  3. SEVOFLURANE [Concomitant]
     Active Substance: SEVOFLURANE
     Indication: General anaesthesia
     Dosage: UNKNOWN
     Route: 065

REACTIONS (4)
  - Supraventricular tachycardia [Recovered/Resolved]
  - Anaphylactoid shock [Recovered/Resolved]
  - Blood pressure decreased [Recovering/Resolving]
  - Urticaria [Unknown]

NARRATIVE: CASE EVENT DATE: 20230207
